FAERS Safety Report 8574803-6 (Version None)
Quarter: 2012Q3

REPORT INFORMATION
  Report Type: 
  Country: None (occurrence: None)
  Receive Date: 20120807
  Receipt Date: 20120720
  Transmission Date: 20120928
  Serious: Yes (Hospitalization, Other)
  Sender: FDA-Public Use
  Company Number: SE-AMGEN-SWECT2012045274

PATIENT
  Age: 52 Year
  Sex: Female

DRUGS (5)
  1. AZATHIOPRINE [Concomitant]
     Dosage: UNK
     Route: 065
     Dates: start: 20071101
  2. ETANERCEPT [Suspect]
     Indication: RHEUMATOID ARTHRITIS
     Dosage: UNK
     Route: 065
     Dates: start: 20090729, end: 20091223
  3. MABTHERA [Concomitant]
     Dosage: UNK
     Route: 065
     Dates: start: 20100113, end: 20100128
  4. HUMIRA [Concomitant]
     Dosage: UNK
     Route: 065
     Dates: start: 20080101, end: 20080101
  5. AZATHIOPRINE [Concomitant]
     Dosage: UNK
     Dates: start: 20071101

REACTIONS (2)
  - GASTROINTESTINAL CARCINOMA [None]
  - DRUG INEFFECTIVE [None]
